FAERS Safety Report 21532034 (Version 2)
Quarter: 2024Q2

REPORT INFORMATION
  Report Type: Report from Study
  Country: US (occurrence: US)
  Receive Date: 20221101
  Receipt Date: 20240516
  Transmission Date: 20240716
  Serious: Yes (Other)
  Sender: FDA-Public Use
  Company Number: US-ABBVIE-4182927

PATIENT
  Sex: Female

DRUGS (1)
  1. HUMIRA [Suspect]
     Active Substance: ADALIMUMAB
     Indication: Neurodermatitis
     Dosage: FREQUENCY TEXT: DAY 1 AND DAY 2 THEN 1 PEN (80MG) DAY 15?FORM STRENGTH: 80 MG
     Route: 058
     Dates: start: 20221004

REACTIONS (1)
  - Hospitalisation [Unknown]

NARRATIVE: CASE EVENT DATE: 20220101
